FAERS Safety Report 19855024 (Version 1)
Quarter: 2021Q3

REPORT INFORMATION
  Report Type: Spontaneous
  Country: SG (occurrence: SG)
  Receive Date: 20210918
  Receipt Date: 20210918
  Transmission Date: 20211014
  Serious: Yes (Disabling)
  Sender: FDA-Public Use
  Company Number: None

PATIENT
  Age: 52 Year
  Sex: Female
  Weight: 72 kg

DRUGS (13)
  1. K2 [Concomitant]
     Active Substance: JWH-018
  2. MAGNESIUM [Concomitant]
     Active Substance: MAGNESIUM
  3. LACTICARE?HC [HYDROCORTISONE] [Suspect]
     Active Substance: HYDROCORTISONE
  4. HYDROCORTISONE. [Suspect]
     Active Substance: HYDROCORTISONE
  5. BETAMETASONE [Suspect]
     Active Substance: BETAMETHASONE
  6. VENTOLIN [Concomitant]
     Active Substance: ALBUTEROL SULFATE
  7. VITAMIN C [Concomitant]
     Active Substance: ASCORBIC ACID
  8. D [Concomitant]
  9. SERRETIDE INHALER [Concomitant]
  10. NAC [Concomitant]
  11. TOPICORT [Suspect]
     Active Substance: DESOXIMETASONE
     Indication: DERMATITIS ATOPIC
  12. NEEM [Concomitant]
  13. CETERIZINE [Concomitant]
     Active Substance: CETIRIZINE HYDROCHLORIDE

REACTIONS (16)
  - Pain of skin [None]
  - Eye swelling [None]
  - Dry skin [None]
  - Muscle spasms [None]
  - Erythema [None]
  - Skin discolouration [None]
  - Skin infection [None]
  - Pruritus [None]
  - Pain [None]
  - Scab [None]
  - Scratch [None]
  - Skin weeping [None]
  - Skin disorder [None]
  - Pyrexia [None]
  - Chills [None]
  - Asthenia [None]

NARRATIVE: CASE EVENT DATE: 20141001
